FAERS Safety Report 6092876-X (Version None)
Quarter: 2009Q1

REPORT INFORMATION
  Report Type: 
  Country: None (occurrence: None)
  Receive Date: 20090225
  Receipt Date: 20090220
  Transmission Date: 20090719
  Serious: No
  Sender: FDA-Public Use
  Company Number: US-B.I. PHARMACEUTICALS,INC./RIDGEFIELD-2009-BP-02208BP

PATIENT
  Sex: Male

DRUGS (9)
  1. SPIRIVA [Suspect]
     Indication: CHRONIC OBSTRUCTIVE PULMONARY DISEASE
     Dosage: 18MCG
     Route: 055
     Dates: start: 20060101
  2. VITAMIN D [Concomitant]
     Indication: VITAMIN D DECREASED
  3. EPZICOM [Concomitant]
     Indication: HIV INFECTION
  4. ISENTRESS [Concomitant]
     Indication: HIV INFECTION
  5. LEXAPRO [Concomitant]
     Indication: PAIN
  6. GABAPENTIN [Concomitant]
     Indication: NEUROPATHY PERIPHERAL
  7. METFORMIN [Concomitant]
     Indication: DIABETES MELLITUS
  8. ZANAFLEX [Concomitant]
     Indication: MUSCLE SPASMS
  9. MELOXICAM [Concomitant]
     Indication: ARTHRITIS

REACTIONS (1)
  - PALPITATIONS [None]
